FAERS Safety Report 4661142-9 (Version None)
Quarter: 2005Q2

REPORT INFORMATION
  Report Type: 
  Country: None (occurrence: None)
  Receive Date: 20050427
  Receipt Date: 20050121
  Transmission Date: 20051028
  Serious: Yes (Other)
  Sender: FDA-Public Use
  Company Number: 210786

PATIENT
  Age: 45 Year
  Sex: Female

DRUGS (9)
  1. XOLAIR [Suspect]
     Indication: ASTHMA
     Dates: start: 20040301
  2. ALLERGY SHOTS(ALLERGENIC EXTRACTS) [Concomitant]
  3. ACCOLATE [Concomitant]
  4. ADVAIR (SALMETEROL XINAFOATE, FLUTICASONE PROPIONATE) [Concomitant]
  5. LISINOPRIL [Concomitant]
  6. ASTENLIN (AZELASTINE HYDROCHLORIDE) [Concomitant]
  7. FLONASE [Concomitant]
  8. AREDIA [Concomitant]
  9. ALLEGRA [Concomitant]

REACTIONS (1)
  - METASTATIC NEOPLASM [None]
